FAERS Safety Report 4881424-5 (Version None)
Quarter: 2005Q4

REPORT INFORMATION
  Report Type: 
  Country: None (occurrence: None)
  Receive Date: 20051201
  Receipt Date: 20050727
  Transmission Date: 20060501
  Serious: No
  Sender: FDA-Public Use
  Company Number: 2005PV000642

PATIENT
  Age: 65 Year
  Sex: Male
  Weight: 68.4932 kg

DRUGS (7)
  1. BYETTA [Suspect]
     Indication: DIABETES MELLITUS NON-INSULIN-DEPENDENT
     Dosage: 5 MCG;BID;SC
     Route: 058
     Dates: start: 20050601
  2. GLUCOPHAGE [Concomitant]
  3. ACTOS [Concomitant]
  4. STARLIX [Concomitant]
  5. PRAVACHOL [Concomitant]
  6. VITAMINS [Concomitant]
  7. AVAPRO [Concomitant]

REACTIONS (4)
  - BLOOD GLUCOSE INCREASED [None]
  - DECREASED APPETITE [None]
  - HYPOGLYCAEMIA UNAWARENESS [None]
  - NAUSEA [None]
